FAERS Safety Report 21252568 (Version 3)
Quarter: 2022Q4

REPORT INFORMATION
  Report Type: Spontaneous
  Country: CA (occurrence: None)
  Receive Date: 20220825
  Receipt Date: 20221122
  Transmission Date: 20230112
  Serious: Yes (Other)
  Sender: FDA-Public Use
  Company Number: 2020SF34821

PATIENT
  Age: 88 Year
  Sex: Female

DRUGS (11)
  1. SYMBICORT [Suspect]
     Active Substance: BUDESONIDE\FORMOTEROL FUMARATE DIHYDRATE
     Indication: Asthma
     Dosage: 2 DF2 PUFF(S), TWO TIMES A DAY
     Route: 055
  2. MEPOLIZUMAB [Suspect]
     Active Substance: MEPOLIZUMAB
     Indication: Product used for unknown indication
     Dosage: 100.0MG UNKNOWN
     Route: 042
     Dates: start: 20190611
  3. MEPOLIZUMAB [Suspect]
     Active Substance: MEPOLIZUMAB
     Indication: Asthma
     Dosage: 100.0MG UNKNOWN
     Route: 042
     Dates: start: 20190611
  4. AMIODARONE [Suspect]
     Active Substance: AMIODARONE
     Indication: Product used for unknown indication
     Route: 065
  5. DILTIAZEM [Suspect]
     Active Substance: DILTIAZEM
     Indication: Product used for unknown indication
     Dosage: UNK
     Route: 065
  6. MEPOLIZUMAB [Suspect]
     Active Substance: MEPOLIZUMAB
     Indication: Product used for unknown indication
     Dosage: 100.0MG UNKNOWN
     Route: 042
  7. MEPOLIZUMAB [Suspect]
     Active Substance: MEPOLIZUMAB
     Indication: Asthma
     Dosage: 100.0MG UNKNOWN
     Route: 042
  8. MEPOLIZUMAB [Suspect]
     Active Substance: MEPOLIZUMAB
     Indication: Product used for unknown indication
     Dosage: 100.0MG UNKNOWN
     Route: 042
  9. MEPOLIZUMAB [Suspect]
     Active Substance: MEPOLIZUMAB
     Indication: Asthma
     Dosage: 100.0MG UNKNOWN
     Route: 042
  10. MEPOLIZUMAB [Suspect]
     Active Substance: MEPOLIZUMAB
     Indication: Product used for unknown indication
     Dosage: 100.0MG UNKNOWN
     Route: 042
  11. MEPOLIZUMAB [Suspect]
     Active Substance: MEPOLIZUMAB
     Indication: Asthma
     Dosage: 100.0MG UNKNOWN
     Route: 042

REACTIONS (7)
  - Asthma [Unknown]
  - Vision blurred [Unknown]
  - Visual impairment [Unknown]
  - Cardiac ablation [Recovered/Resolved]
  - Lacrimation increased [Not Recovered/Not Resolved]
  - Blood pressure increased [Unknown]
  - Therapeutic product effect incomplete [Unknown]
